FAERS Safety Report 23846070 (Version 12)
Quarter: 2025Q3

REPORT INFORMATION
  Report Type: Other
  Country: US (occurrence: US)
  Receive Date: 20240512
  Receipt Date: 20250923
  Transmission Date: 20251021
  Serious: Yes (Other)
  Sender: TRAVERE THERAPEUTICS
  Company Number: US-TRAVERE-2024TVT00362

PATIENT
  Age: 30 Year
  Sex: Female
  Weight: 52.16 kg

DRUGS (10)
  1. FILSPARI [Suspect]
     Active Substance: SPARSENTAN
     Indication: IgA nephropathy
     Route: 048
  2. FILSPARI [Suspect]
     Active Substance: SPARSENTAN
     Indication: Iron deficiency anaemia
     Route: 048
     Dates: start: 20240327
  3. FILSPARI [Suspect]
     Active Substance: SPARSENTAN
     Route: 048
     Dates: start: 202405
  4. FILSPARI [Suspect]
     Active Substance: SPARSENTAN
     Dosage: 200MG EVERY OTHER DAY
     Route: 048
  5. FILSPARI [Suspect]
     Active Substance: SPARSENTAN
     Dosage: 200MG EVERY OTHER DAY
     Route: 048
     Dates: start: 202408, end: 2025
  6. FISH OIL [Concomitant]
     Active Substance: FISH OIL
  7. PROBIOTICS NOS [Concomitant]
     Active Substance: PROBIOTICS NOS
  8. NEXPLANON [Concomitant]
     Active Substance: ETONOGESTREL
  9. FARXIGA [Concomitant]
     Active Substance: DAPAGLIFLOZIN PROPANEDIOL
  10. MYCOPHENOLATE MOFETIL [Concomitant]
     Active Substance: MYCOPHENOLATE MOFETIL

REACTIONS (9)
  - Hypotension [None]
  - Dizziness [None]
  - Hypertension [Unknown]
  - Drug ineffective [Unknown]
  - Condition aggravated [Unknown]
  - Proteinuria [None]
  - Dizziness postural [Recovered/Resolved]
  - Off label use [Unknown]
  - Product dose omission issue [Unknown]

NARRATIVE: CASE EVENT DATE: 20240409
